FAERS Safety Report 6160071-1 (Version None)
Quarter: 2009Q2

REPORT INFORMATION
  Report Type: 
  Country: None (occurrence: None)
  Receive Date: 20090416
  Receipt Date: 20090402
  Transmission Date: 20091009
  Serious: No
  Sender: FDA-Public Use
  Company Number: 8044687

PATIENT
  Age: 38 Year
  Sex: Male

DRUGS (1)
  1. KEPPRA [Suspect]
     Dosage: 1500 MG 2/D ITC

REACTIONS (1)
  - WRONG TECHNIQUE IN DRUG USAGE PROCESS [None]
